FAERS Safety Report 25339852 (Version 1)
Quarter: 2025Q2

REPORT INFORMATION
  Report Type: Spontaneous
  Country: IN (occurrence: IN)
  Receive Date: 20250521
  Receipt Date: 20250521
  Transmission Date: 20250716
  Serious: Yes (Hospitalization)
  Sender: ACCORD
  Company Number: IN-MLMSERVICE-20250502-PI497235-00058-1

PATIENT
  Age: 45 Year
  Sex: Male

DRUGS (7)
  1. ATROPINE [Suspect]
     Active Substance: ATROPINE
     Indication: Chemical poisoning
     Dosage: 10 ML IN 100 ML NORMAL SALINE AT RATE OVER 8 HOURS
     Route: 042
  2. SODIUM CHLORIDE [Concomitant]
     Active Substance: SODIUM CHLORIDE
     Dosage: ATROPINE (10 ML IN 100 ML NORMAL SALINE) AT A SLOW RATE OVER 8 HOURS
     Route: 042
  3. PRALIDOXIME [Concomitant]
     Active Substance: PRALIDOXIME
     Indication: Chemical poisoning
     Dosage: 2 GM IN 100 ML NORMAL SALINE IV WAS ADMINISTERED THRICE DAILY
     Route: 042
  4. OPTINEURON [Concomitant]
     Indication: Chemical poisoning
     Dosage: 1 AMP IN 100 ML NORMAL SALINE
     Route: 042
  5. PANTOPRAZOLE [Concomitant]
     Active Substance: PANTOPRAZOLE
     Indication: Chemical poisoning
     Route: 042
  6. SODIUM CHLORIDE [Concomitant]
     Active Substance: SODIUM CHLORIDE
     Dosage: OPTINEURON 1 AMP IN 100 ML NORMAL SALINE IV TWICE DAILY
  7. ATROPINE [Suspect]
     Active Substance: ATROPINE
     Indication: Chemical poisoning
     Route: 042

REACTIONS (2)
  - Substance-induced psychotic disorder [Recovered/Resolved]
  - Dry mouth [Recovered/Resolved]
